FAERS Safety Report 7108168-3 (Version None)
Quarter: 2010Q4

REPORT INFORMATION
  Report Type: 
  Country: None (occurrence: None)
  Receive Date: 20101115
  Receipt Date: 20101115
  Transmission Date: 20110411
  Serious: Yes (Other)
  Sender: FDA-Public Use
  Company Number: None

PATIENT
  Sex: Female
  Weight: 57.6068 kg

DRUGS (2)
  1. DELTASONE [Suspect]
     Indication: ARTERITIS
  2. PREDNISONE [Suspect]

REACTIONS (9)
  - ALOPECIA [None]
  - FALL [None]
  - IMMUNE SYSTEM DISORDER [None]
  - MYOPATHY [None]
  - NERVE INJURY [None]
  - ONYCHOMADESIS [None]
  - OVERDOSE [None]
  - PNEUMONIA [None]
  - WALKING AID USER [None]
